FAERS Safety Report 10953035 (Version 1)
Quarter: 2015Q1

REPORT INFORMATION
  Report Type: Spontaneous
  Country: US (occurrence: None)
  Receive Date: 20150324
  Receipt Date: 20150324
  Transmission Date: 20150721
  Serious: Yes (Disabling)
  Sender: FDA-Public Use
  Company Number: None

PATIENT
  Age: 54 Year
  Sex: Female
  Weight: 68.04 kg

DRUGS (3)
  1. SYNTHROID [Concomitant]
     Active Substance: LEVOTHYROXINE SODIUM
  2. VITAMIN D [Concomitant]
     Active Substance: CHOLECALCIFEROL
  3. METRONIDAZOLE VAGINAL GEL USP, 0.75% (TOLMAR INC) [Suspect]
     Active Substance: METRONIDAZOLE
     Indication: VAGINITIS GARDNERELLA
     Dosage: 0.75%, APPLICATOR FULL, TWICE DAILY, VAGINALLY
     Route: 067
     Dates: start: 20150308, end: 20150310

REACTIONS (2)
  - Hypoaesthesia [None]
  - Paraesthesia [None]

NARRATIVE: CASE EVENT DATE: 20150311
